FAERS Safety Report 6694238-0 (Version None)
Quarter: 2010Q2

REPORT INFORMATION
  Report Type: 
  Country: None (occurrence: None)
  Receive Date: 20100423
  Receipt Date: 20100413
  Transmission Date: 20101027
  Serious: Yes (Hospitalization)
  Sender: FDA-Public Use
  Company Number: US-JNJFOC-20100403912

PATIENT
  Age: 41 Year
  Sex: Female
  Weight: 44 kg

DRUGS (2)
  1. REMICADE [Suspect]
     Indication: CROHN'S DISEASE
     Dosage: DATE APPROXIMATE
     Route: 042
  2. CHOLESTYRAMINE [Concomitant]
     Indication: FREQUENT BOWEL MOVEMENTS
     Route: 048

REACTIONS (1)
  - PNEUMOTHORAX [None]
